FAERS Safety Report 6096905-9 (Version None)
Quarter: 2009Q1

REPORT INFORMATION
  Report Type: 
  Country: None (occurrence: None)
  Receive Date: 20090227
  Receipt Date: 20090217
  Transmission Date: 20090719
  Serious: Yes (Hospitalization)
  Sender: FDA-Public Use
  Company Number: CA-JNJFOC-20090204561

PATIENT
  Sex: Female
  Weight: 65.77 kg

DRUGS (16)
  1. TYLENOL W/ CODEINE NO. 3 [Suspect]
     Indication: BACK PAIN
     Dosage: 1-2 TABLETS
     Route: 048
  2. ZOPICLONE [Suspect]
     Indication: INSOMNIA
     Route: 048
  3. ARTIFICIAL TEARS [Concomitant]
     Indication: DRY EYE
     Route: 047
  4. TRAMADOL HCL [Concomitant]
     Route: 048
  5. BECONASE [Concomitant]
     Indication: SEASONAL ALLERGY
     Route: 055
  6. FELODIPINE ER [Concomitant]
     Indication: HYPERTENSION
     Route: 048
  7. ADVAIR HFA [Concomitant]
     Indication: ASTHMA
     Route: 055
  8. ATIVAN [Concomitant]
     Indication: ANXIETY
     Route: 048
  9. PLAVIX [Concomitant]
     Indication: ARTERIOSCLEROSIS
     Route: 048
  10. GABAPENTIN [Concomitant]
     Indication: NEURALGIA
     Route: 048
  11. PREVACID [Concomitant]
     Indication: GASTROOESOPHAGEAL REFLUX DISEASE
     Route: 048
  12. TAPAZOLE [Concomitant]
     Indication: HYPOTHYROIDISM
     Route: 048
  13. ACTONEL [Concomitant]
     Indication: OSTEOPOROSIS
     Route: 048
  14. VENTOLIN [Concomitant]
     Indication: ASTHMA
     Route: 055
  15. OXYCONTIN [Concomitant]
     Indication: ANALGESIA
     Route: 048
  16. IRON [Concomitant]
     Indication: ANAEMIA
     Route: 048

REACTIONS (2)
  - CONFUSIONAL STATE [None]
  - HALLUCINATION [None]
